FAERS Safety Report 15933447 (Version 1)
Quarter: 2019Q1

REPORT INFORMATION
  Report Type: Spontaneous
  Country: US (occurrence: US)
  Receive Date: 20190207
  Receipt Date: 20190207
  Transmission Date: 20190417
  Serious: No
  Sender: FDA-Public Use
  Company Number: US-AMNEAL PHARMACEUTICALS-2019AMN00031

PATIENT
  Sex: Male

DRUGS (2)
  1. GUAIFENESIN. [Suspect]
     Active Substance: GUAIFENESIN
     Indication: NASAL CONGESTION
     Dosage: ONE CAPLET EVERY 12 HRS
     Route: 048
     Dates: start: 20181227, end: 20190102
  2. GUAIFENESIN. [Suspect]
     Active Substance: GUAIFENESIN
     Indication: NASOPHARYNGITIS

REACTIONS (1)
  - Drug ineffective [Recovered/Resolved]
